FAERS Safety Report 5199744-6 (Version None)
Quarter: 2007Q1

REPORT INFORMATION
  Report Type: 
  Country: None (occurrence: None)
  Receive Date: 20070105
  Receipt Date: 20051117
  Transmission Date: 20070707
  Serious: No
  Sender: FDA-Public Use
  Company Number: US-GLAXOSMITHKLINE-A0582526A

PATIENT
  Age: 78 Year
  Sex: Female

DRUGS (1)
  1. TAGAMET HB 200 [Suspect]

REACTIONS (1)
  - NAUSEA [None]
